APPROVED DRUG PRODUCT: FLUCONAZOLE IN SODIUM CHLORIDE 0.9%
Active Ingredient: FLUCONAZOLE
Strength: 200MG/100ML (2MG/ML)
Dosage Form/Route: INJECTABLE;INJECTION
Application: A077947 | Product #001
Applicant: BAXTER HEALTHCARE CORP
Approved: May 26, 2010 | RLD: No | RS: No | Type: DISCN